FAERS Safety Report 5992975-4 (Version None)
Quarter: 2008Q4

REPORT INFORMATION
  Report Type: 
  Country: None (occurrence: None)
  Receive Date: 20081210
  Receipt Date: 20081210
  Transmission Date: 20090506
  Serious: Yes (Hospitalization, Other)
  Sender: FDA-Public Use
  Company Number: None

PATIENT
  Age: 52 Year
  Sex: Female
  Weight: 72.5755 kg

DRUGS (1)
  1. ULTRABRITE TOOTHPASTE BAKING SODA AND PEROXIDE/COOL MINT COLGATE/ POLM [Suspect]
     Dosage: VERY SMALL AMOUNT 2 X DAY PO
     Route: 048
     Dates: start: 20081001, end: 20081208

REACTIONS (4)
  - ANGIOEDEMA [None]
  - DRUG HYPERSENSITIVITY [None]
  - PARAESTHESIA ORAL [None]
  - THERMAL BURN [None]
